FAERS Safety Report 14204501 (Version 1)
Quarter: 2017Q4

REPORT INFORMATION
  Report Type: Other
  Country: CA (occurrence: CA)
  Receive Date: 20171120
  Receipt Date: 20171120
  Transmission Date: 20180321
  Serious: Yes (Other)
  Sender: FDA-Public Use
  Company Number: CA-APOTEX-2017AP021274

PATIENT
  Sex: Male

DRUGS (1)
  1. APO-TRAMADOL [Suspect]
     Active Substance: TRAMADOL
     Indication: PAIN
     Dosage: UNK
     Route: 048

REACTIONS (9)
  - Product quality issue [Unknown]
  - Loss of personal independence in daily activities [Unknown]
  - Non-24-hour sleep-wake disorder [Unknown]
  - Road traffic accident [Unknown]
  - Pain in extremity [Unknown]
  - Asthenia [Unknown]
  - Fatigue [Unknown]
  - Dizziness [Unknown]
  - Dependence [Unknown]
